FAERS Safety Report 7807676-7 (Version None)
Quarter: 2011Q4

REPORT INFORMATION
  Report Type: 
  Country: None (occurrence: None)
  Receive Date: 20111011
  Receipt Date: 20111002
  Transmission Date: 20120403
  Serious: Yes (Other)
  Sender: FDA-Public Use
  Company Number: US-PURDUE-USA-2011-0075411

PATIENT
  Sex: Female
  Weight: 54.875 kg

DRUGS (1)
  1. PERI-COLACE [Suspect]
     Indication: CONSTIPATION
     Dosage: UNK UNK, SEE TEXT
     Dates: start: 20110901

REACTIONS (3)
  - INTESTINAL STENT INSERTION [None]
  - CONSTIPATION [None]
  - DRUG INEFFECTIVE [None]
